FAERS Safety Report 25386049 (Version 1)
Quarter: 2025Q2

REPORT INFORMATION
  Report Type: Spontaneous
  Country: PL (occurrence: PL)
  Receive Date: 20250602
  Receipt Date: 20250602
  Transmission Date: 20250717
  Serious: Yes (Other)
  Sender: GILEAD
  Company Number: PL-GILEAD-2025-0715132

PATIENT
  Age: 73 Year
  Sex: Female

DRUGS (1)
  1. TRODELVY [Suspect]
     Active Substance: SACITUZUMAB GOVITECAN-HZIY
     Indication: Triple negative breast cancer
     Route: 065
     Dates: start: 20240715, end: 20250509

REACTIONS (2)
  - Invasive breast carcinoma [Unknown]
  - Neoplasm progression [Unknown]
